FAERS Safety Report 19952083 (Version 1)
Quarter: 2021Q4

REPORT INFORMATION
  Report Type: Report from Study
  Country: None (occurrence: US)
  Receive Date: 20211013
  Receipt Date: 20211013
  Transmission Date: 20220303
  Serious: Yes (Hospitalization)
  Sender: FDA-Public Use
  Company Number: US-ABBVIE-21K-163-4117407-00

PATIENT
  Age: 78 Year
  Sex: Female

DRUGS (4)
  1. RINVOQ [Suspect]
     Active Substance: UPADACITINIB
     Indication: Rheumatoid arthritis
     Route: 048
     Dates: start: 20200210
  2. LEFLUNOMIDE [Concomitant]
     Active Substance: LEFLUNOMIDE
     Indication: Rheumatoid arthritis
  3. FOLIC ACID [Concomitant]
     Active Substance: FOLIC ACID
     Indication: Cardiovascular event prophylaxis
  4. SIMVASTATIN [Concomitant]
     Active Substance: SIMVASTATIN
     Indication: Blood cholesterol

REACTIONS (13)
  - Arthritis [Recovering/Resolving]
  - Arthralgia [Recovering/Resolving]
  - Osteoarthritis [Unknown]
  - Skin infection [Recovered/Resolved]
  - Erythema [Recovered/Resolved]
  - Pain of skin [Recovered/Resolved]
  - Skin infection [Recovered/Resolved]
  - Unevaluable event [Recovered/Resolved]
  - Gingivitis [Recovered/Resolved]
  - Eye infection [Recovered/Resolved]
  - Sinusitis [Recovered/Resolved]
  - Immunodeficiency [Not Recovered/Not Resolved]
  - Musculoskeletal disorder [Unknown]

NARRATIVE: CASE EVENT DATE: 20200101
